FAERS Safety Report 6416598-8 (Version None)
Quarter: 2009Q4

REPORT INFORMATION
  Report Type: 
  Country: None (occurrence: None)
  Receive Date: 20091027
  Receipt Date: 20091015
  Transmission Date: 20100525
  Serious: Yes (Disabling)
  Sender: FDA-Public Use
  Company Number: US-WYE-H11633409

PATIENT
  Sex: Female
  Weight: 70.64 kg

DRUGS (6)
  1. METHYLNALTREXONE BROMIDE [Suspect]
     Indication: CONSTIPATION
     Route: 058
     Dates: start: 20090331, end: 20091015
  2. FLEXERIL [Concomitant]
     Indication: INSOMNIA
     Dosage: UNSPECIFIED
     Route: 065
     Dates: start: 20090910
  3. AVONEX [Concomitant]
     Indication: MULTIPLE SCLEROSIS
     Dosage: UNSPECIFIED
     Route: 065
     Dates: start: 20070713
  4. FLECTOR [Concomitant]
     Indication: MULTIPLE SCLEROSIS
     Dosage: 1/3%, FREQUENCY UNSPECIFIED
     Route: 065
     Dates: start: 20080801
  5. TIZANIDINE HCL [Concomitant]
     Indication: MULTIPLE SCLEROSIS
     Dosage: UNSPECIFIED
     Route: 065
     Dates: start: 20080804
  6. CYANOCOBALAMIN [Concomitant]
     Indication: PROPHYLAXIS
     Dosage: UNSPECIFIED
     Route: 065
     Dates: start: 20081017

REACTIONS (1)
  - CHOROIDITIS [None]
